FAERS Safety Report 10940425 (Version 2)
Quarter: 2015Q2

REPORT INFORMATION
  Report Type: Spontaneous
  Country: US (occurrence: US)
  Receive Date: 20150322
  Receipt Date: 20150524
  Transmission Date: 20150821
  Serious: Yes (Other)
  Sender: FDA-Public Use
  Company Number: US-JNJFOC-20140509270

PATIENT
  Age: 6 Decade
  Sex: Male

DRUGS (1)
  1. REOPRO [Suspect]
     Active Substance: ABCIXIMAB
     Indication: ACUTE MYOCARDIAL INFARCTION
     Dosage: 10MG/5ML, 5ML X 1 VIALS AM
     Route: 042
     Dates: start: 2014

REACTIONS (1)
  - Thrombocytopenia [Unknown]
